FAERS Safety Report 17156628 (Version 1)
Quarter: 2019Q4

REPORT INFORMATION
  Report Type: Spontaneous
  Country: FR (occurrence: FR)
  Receive Date: 20191216
  Receipt Date: 20191216
  Transmission Date: 20200122
  Serious: Yes (Hospitalization)
  Sender: FDA-Public Use
  Company Number: FR-TEVA-2019-FR-1066667

PATIENT
  Age: 68 Year
  Sex: Male

DRUGS (1)
  1. AMOXICILLINE [Suspect]
     Active Substance: AMOXICILLIN
     Indication: PRODUCT USED FOR UNKNOWN INDICATION
     Route: 048
     Dates: start: 201710, end: 201710

REACTIONS (3)
  - Eosinophilia [Recovered/Resolved]
  - Rash maculo-papular [Recovered/Resolved]
  - Rash vesicular [Recovered/Resolved]

NARRATIVE: CASE EVENT DATE: 201710
